FAERS Safety Report 10576874 (Version 2)
Quarter: 2014Q4

REPORT INFORMATION
  Report Type: Spontaneous
  Country: FR (occurrence: FR)
  Receive Date: 20141111
  Receipt Date: 20141120
  Transmission Date: 20150529
  Serious: Yes (Hospitalization)
  Sender: FDA-Public Use
  Company Number: FR-PFIZER INC-2014309224

PATIENT
  Age: 49 Year
  Sex: Female

DRUGS (10)
  1. DAFALGAN CODEINE [Suspect]
     Active Substance: ACETAMINOPHEN\CODEINE PHOSPHATE
     Indication: SCIATICA
     Dosage: UNK
     Route: 048
     Dates: start: 20140730, end: 20140918
  2. VOLTARENE [Suspect]
     Active Substance: DICLOFENAC SODIUM
     Indication: SCIATICA
     Dosage: UNK
     Route: 048
     Dates: start: 20140814
  3. MIOREL [Concomitant]
     Active Substance: ORPHENADRINE
     Dosage: UNK
     Route: 048
     Dates: start: 20140730, end: 20140804
  4. KENACORT [Concomitant]
     Active Substance: TRIAMCINOLONE
     Indication: SCIATICA
     Dosage: 1 DF, SINGLE
     Dates: start: 20140819, end: 20140819
  5. DOMPERIDONE [Concomitant]
     Active Substance: DOMPERIDONE
     Indication: SCIATICA
     Dosage: UNK
     Route: 048
     Dates: start: 20140814
  6. LYRICA [Suspect]
     Active Substance: PREGABALIN
     Dosage: UNK
     Route: 048
     Dates: start: 20140808, end: 20140819
  7. ACUPAN [Suspect]
     Active Substance: NEFOPAM HYDROCHLORIDE
     Indication: SCIATICA
     Dosage: UNK
     Route: 042
     Dates: start: 20140814
  8. SOLUPRED [Suspect]
     Active Substance: PREDNISOLONE
     Indication: SCIATICA
     Dosage: UNK
     Dates: start: 20140905
  9. ESOMEPRAZOLE [Concomitant]
     Active Substance: ESOMEPRAZOLE
     Indication: SCIATICA
     Dosage: UNK
     Route: 048
     Dates: start: 20140730, end: 20140804
  10. BIPROFENID [Suspect]
     Active Substance: KETOPROFEN
     Indication: SCIATICA
     Dosage: UNK
     Route: 048
     Dates: start: 20140730, end: 20140918

REACTIONS (1)
  - Vasculitis [Unknown]

NARRATIVE: CASE EVENT DATE: 201409
